FAERS Safety Report 11986366 (Version 2)
Quarter: 2016Q2

REPORT INFORMATION
  Report Type: Spontaneous
  Country: CA (occurrence: CA)
  Receive Date: 20160202
  Receipt Date: 20160511
  Transmission Date: 20160815
  Serious: Yes (Other)
  Sender: FDA-Public Use
  Company Number: CA-009507513-1601CAN011883

PATIENT
  Age: 84 Year
  Sex: Female

DRUGS (19)
  1. TRAZODONE HYDROCHLORIDE. [Suspect]
     Active Substance: TRAZODONE HYDROCHLORIDE
     Dosage: 25 MG 1 IN 1 AS REQUIRED
     Route: 065
  2. BISOPROLOL [Suspect]
     Active Substance: BISOPROLOL
     Indication: PRODUCT USED FOR UNKNOWN INDICATION
     Dosage: 1 IN 1 D
     Route: 065
  3. METOCLOPRAMIDE. [Suspect]
     Active Substance: METOCLOPRAMIDE
     Indication: DIVERTICULITIS
     Dosage: 10 MG, 3 IN 1 D
     Route: 065
  4. TIMOPTIC [Suspect]
     Active Substance: TIMOLOL MALEATE
     Indication: GLAUCOMA
     Dosage: 1 DOSAGE FORM, 2 IN 1 D
     Route: 047
  5. BETAHISTINE [Suspect]
     Active Substance: BETAHISTINE
     Dosage: 8 MG, 3 IN 1 D
     Route: 065
  6. CITALOPRAM [Suspect]
     Active Substance: CITALOPRAM HYDROBROMIDE
     Indication: DEPRESSED MOOD
     Dosage: 5 MG/ML, 1 IN 1 D
     Route: 065
  7. DIMENHYDRINATE. [Suspect]
     Active Substance: DIMENHYDRINATE
     Indication: NAUSEA
     Dosage: 50 MG 1 IN 1, AS REQUIRED
     Route: 065
  8. ROSUVASTATIN. [Suspect]
     Active Substance: ROSUVASTATIN
     Indication: HAEMORRHAGIC STROKE
     Dosage: 20 MG 1 IN 1 D
     Route: 065
  9. CANDESARTAN CILEXETIL. [Suspect]
     Active Substance: CANDESARTAN CILEXETIL
     Indication: HYPERTENSION
     Dosage: 4 MG 1 IN 1 D
     Route: 065
  10. PANTOPRAZOLE [Suspect]
     Active Substance: PANTOPRAZOLE SODIUM
     Indication: NAUSEA
     Dosage: 40 MG 1 IN 1 D
     Route: 065
  11. RISEDRONATE SODIUM. [Suspect]
     Active Substance: RISEDRONATE SODIUM
     Indication: OSTEOPOROSIS
     Dosage: 150 MG, UNK
     Route: 065
  12. TRAZODONE HYDROCHLORIDE. [Suspect]
     Active Substance: TRAZODONE HYDROCHLORIDE
     Indication: INSOMNIA
     Dosage: 50 MG 1 IN 1 D
     Route: 065
  13. BETAHISTINE [Suspect]
     Active Substance: BETAHISTINE
     Indication: VERTIGO
     Dosage: 8 MG, 1 IN 1 D
     Route: 065
  14. CETIRIZINE HYDROCHLORIDE. [Suspect]
     Active Substance: CETIRIZINE HYDROCHLORIDE
     Indication: EYE PRURITUS
     Dosage: 20 MG, 1 IN 1D
     Route: 065
  15. LEVOTHYROXINE SODIUM. [Suspect]
     Active Substance: LEVOTHYROXINE SODIUM
     Indication: HYPOTHYROIDISM
     Dosage: 0.05 MILLIGRAM, 1 EVERY 1 DAY
     Route: 065
  16. REMERON [Suspect]
     Active Substance: MIRTAZAPINE
     Indication: DEPRESSED MOOD
     Dosage: 7.5 MG, 1 IN 1 D
     Route: 065
  17. BETAHISTINE [Suspect]
     Active Substance: BETAHISTINE
     Dosage: 8 MG, 2 IN 1 D
     Route: 065
  18. CARBIDOPA (+) LEVODOPA [Suspect]
     Active Substance: CARBIDOPA\LEVODOPA
     Indication: PARKINSON^S DISEASE
     Dosage: 2 DOSAGE FORMS, 3 IN 1 D
     Route: 065
  19. VITAMIN D [Suspect]
     Active Substance: CHOLECALCIFEROL
     Indication: OSTEOPOROSIS
     Dosage: 1000 UNITS, 1 IN 1 D
     Route: 065

REACTIONS (19)
  - Condition aggravated [Unknown]
  - Depressed mood [Unknown]
  - Dizziness [Unknown]
  - Dry mouth [Unknown]
  - Nausea [Unknown]
  - Vitamin B12 decreased [Unknown]
  - Decreased appetite [Unknown]
  - Hypotension [Unknown]
  - Drug ineffective [Unknown]
  - Lacrimation increased [Unknown]
  - Abdominal distension [Unknown]
  - Fatigue [Unknown]
  - Hypersensitivity [Unknown]
  - Constipation [Unknown]
  - Fall [Unknown]
  - Vomiting [Unknown]
  - Activities of daily living impaired [Unknown]
  - Parkinson^s disease [Unknown]
  - Eye pruritus [Unknown]
